FAERS Safety Report 21599578 (Version 3)
Quarter: 2023Q2

REPORT INFORMATION
  Report Type: Spontaneous
  Country: US (occurrence: US)
  Receive Date: 20221115
  Receipt Date: 20230428
  Transmission Date: 20230721
  Serious: No
  Sender: FDA-Public Use
  Company Number: US-SA-SAC20221109000044

PATIENT

DRUGS (2)
  1. LARONIDASE [Suspect]
     Active Substance: LARONIDASE
     Indication: Mucopolysaccharidosis I
     Dosage: 17.4 UNK, QW
     Route: 042
     Dates: start: 20220815
  2. LARONIDASE [Suspect]
     Active Substance: LARONIDASE
     Dosage: 17.4 UNK, QW
     Route: 042
     Dates: start: 20230302, end: 20230411

REACTIONS (4)
  - Tremor [Not Recovered/Not Resolved]
  - Pyrexia [Recovering/Resolving]
  - Infection [Not Recovered/Not Resolved]
  - Poor venous access [Recovering/Resolving]

NARRATIVE: CASE EVENT DATE: 20221031
